FAERS Safety Report 15786943 (Version 1)
Quarter: 2019Q1

REPORT INFORMATION
  Report Type: Spontaneous
  Country: JP (occurrence: JP)
  Receive Date: 20190103
  Receipt Date: 20190103
  Transmission Date: 20190417
  Serious: Yes (Hospitalization)
  Sender: FDA-Public Use
  Company Number: JP-AMREGENT-20182382

PATIENT
  Age: 30 Year
  Sex: Female
  Weight: 52.5 kg

DRUGS (3)
  1. FENTANYL. [Concomitant]
     Active Substance: FENTANYL
     Dosage: UNKNOWN
     Route: 065
  2. RITODRINE HYDROCHLORIDE [Suspect]
     Active Substance: RITODRINE HYDROCHLORIDE
     Dosage: TOTAL DOSAGE: OVER 20,000 MG
     Route: 042
  3. DROREPTAN (DROPERIDOL-DSI) [Suspect]
     Active Substance: DROPERIDOL
     Dosage: 2.5 MG, SINGLE
     Route: 042

REACTIONS (1)
  - Pulmonary oedema [Recovering/Resolving]
